FAERS Safety Report 20005604 (Version 1)
Quarter: 2021Q4

REPORT INFORMATION
  Report Type: Spontaneous
  Country: GB (occurrence: GB)
  Receive Date: 20211027
  Receipt Date: 20211027
  Transmission Date: 20220303
  Serious: Yes (Hospitalization)
  Sender: FDA-Public Use
  Company Number: GB-MERCK HEALTHCARE KGAA-9274273

PATIENT
  Age: 63 Year
  Sex: Male

DRUGS (1)
  1. REBIF [Suspect]
     Active Substance: INTERFERON BETA-1A
     Indication: Multiple sclerosis
     Dosage: PRE-FILLED SYRINGES (REBIJECT)

REACTIONS (3)
  - COVID-19 [Unknown]
  - Multiple sclerosis [Unknown]
  - Infection [Unknown]

NARRATIVE: CASE EVENT DATE: 20211001
